FAERS Safety Report 18849031 (Version 2)
Quarter: 2021Q1

REPORT INFORMATION
  Report Type: Report from Study
  Country: CO (occurrence: CO)
  Receive Date: 20210205
  Receipt Date: 20210316
  Transmission Date: 20210419
  Serious: Yes (Death, Hospitalization)
  Sender: FDA-Public Use
  Company Number: NVSC2021CO026170

PATIENT
  Sex: Female
  Weight: 90 kg

DRUGS (2)
  1. REVOLADE [Suspect]
     Active Substance: ELTROMBOPAG OLAMINE
     Indication: IMMUNE THROMBOCYTOPENIA
     Dosage: 75 MG, QD (STARTED APPROXIMATELY 1 YEAR AGO)
     Route: 048
     Dates: end: 20210119
  2. ERYTHROPOIETIN [Concomitant]
     Active Substance: ERYTHROPOIETIN
     Indication: IMMUNE THROMBOCYTOPENIA
     Dosage: UNK UNK, QW (STARTED APPROXIMATELY 1 YEAR AGO)
     Route: 065

REACTIONS (9)
  - Feeding disorder [Unknown]
  - Fatigue [Unknown]
  - Concomitant disease progression [Fatal]
  - General physical health deterioration [Unknown]
  - Dysphagia [Unknown]
  - Asthenia [Unknown]
  - Chronic myeloid leukaemia [Fatal]
  - Drug ineffective [Unknown]
  - Platelet count decreased [Unknown]
